FAERS Safety Report 11432771 (Version 3)
Quarter: 2016Q3

REPORT INFORMATION
  Report Type: Spontaneous
  Country: US (occurrence: US)
  Receive Date: 20150828
  Receipt Date: 20160907
  Transmission Date: 20161109
  Serious: Yes (Hospitalization)
  Sender: FDA-Public Use
  Company Number: US-LUNDBECK-DKLU2003032

PATIENT
  Age: 70 Year
  Sex: Male

DRUGS (4)
  1. CARBIDOPA/LEVODOPA/ENTACAPONE [Concomitant]
     Active Substance: CARBIDOPA\ENTACAPONE\LEVODOPA
     Indication: PRODUCT USED FOR UNKNOWN INDICATION
     Route: 065
  2. NORTHERA [Suspect]
     Active Substance: DROXIDOPA
     Route: 048
     Dates: start: 20150910
  3. LEXAPRO [Concomitant]
     Active Substance: ESCITALOPRAM OXALATE
     Indication: PRODUCT USED FOR UNKNOWN INDICATION
     Route: 065
  4. NORTHERA [Suspect]
     Active Substance: DROXIDOPA
     Indication: ORTHOSTATIC HYPOTENSION
     Route: 065

REACTIONS (9)
  - Hyperhidrosis [Unknown]
  - Hyperkalaemia [Unknown]
  - Uraemic encephalopathy [Unknown]
  - Acute kidney injury [Unknown]
  - Hypophagia [Unknown]
  - Hypovolaemia [Unknown]
  - Feeling cold [Unknown]
  - Muscle spasms [Unknown]
  - Dysstasia [Unknown]

NARRATIVE: CASE EVENT DATE: 20160725
